FAERS Safety Report 4931965-7 (Version None)
Quarter: 2006Q1

REPORT INFORMATION
  Report Type: 
  Country: None (occurrence: None)
  Receive Date: 20060303
  Receipt Date: 20060223
  Transmission Date: 20060701
  Serious: Yes (Death)
  Sender: FDA-Public Use
  Company Number: KR-SANOFI-SYNTHELABO-A01200601489

PATIENT
  Sex: Male
  Weight: 63.2 kg

DRUGS (3)
  1. ELOXATIN [Suspect]
     Route: 042
     Dates: start: 20050510, end: 20050510
  2. LEUCOVORIN CALCIUM [Concomitant]
     Route: 042
     Dates: start: 20050510, end: 20050511
  3. FLUOROURACIL [Concomitant]
     Route: 042
     Dates: start: 20050510, end: 20050511

REACTIONS (3)
  - CARDIAC FAILURE [None]
  - MYOCARDIAL INFARCTION [None]
  - SEPSIS [None]
